FAERS Safety Report 9333428 (Version 2)
Quarter: 2013Q2

REPORT INFORMATION
  Report Type: Spontaneous
  Country: US (occurrence: None)
  Receive Date: 20130604
  Receipt Date: 20130612
  Transmission Date: 20140414
  Serious: Yes (Other)
  Sender: FDA-Public Use
  Company Number: JPI-P-030025

PATIENT
  Age: 31 Year
  Sex: Male
  Weight: 103.42 kg

DRUGS (5)
  1. XYREM (500 MILLIGRAM/MILLILITERS, SOLUTION) (SODIUM OXYBATE) [Suspect]
     Indication: CATAPLEXY
     Dosage: 4.5 GM (2.25 GM,2 IN 1 D) ORAL
     Route: 048
     Dates: start: 20030114
  2. OXYCODONE [Concomitant]
  3. ALBUTEROL SULFATE [Concomitant]
  4. AMPHETAMINE, DEXTROAMPHETAMINE MIXED SALTS (TABLETS) [Concomitant]
  5. TIZANIDINE [Concomitant]

REACTIONS (7)
  - Tendon rupture [None]
  - Histoplasmosis [None]
  - Asthma [None]
  - Sinusitis [None]
  - Anxiety [None]
  - Dyspnoea [None]
  - Granuloma [None]
